FAERS Safety Report 20536752 (Version 1)
Quarter: 2022Q1

REPORT INFORMATION
  Report Type: Report from Study
  Country: US (occurrence: US)
  Receive Date: 20220302
  Receipt Date: 20220302
  Transmission Date: 20220424
  Serious: Yes (Other)
  Sender: FDA-Public Use
  Company Number: US-JNJFOC-20211126009

PATIENT
  Age: 61 Year
  Sex: Female

DRUGS (2)
  1. RILPIVIRINE [Suspect]
     Active Substance: RILPIVIRINE
     Indication: HIV infection
     Route: 048
     Dates: start: 20211027, end: 20211101
  2. CABOTEGRAVIR [Suspect]
     Active Substance: CABOTEGRAVIR
     Indication: HIV infection
     Route: 048
     Dates: start: 20211027, end: 20211101

REACTIONS (3)
  - Pruritus [Unknown]
  - Oropharyngeal pain [Unknown]
  - Mood swings [Unknown]

NARRATIVE: CASE EVENT DATE: 20211027
